FAERS Safety Report 17979499 (Version 1)
Quarter: 2020Q3

REPORT INFORMATION
  Report Type: Spontaneous
  Country: US (occurrence: US)
  Receive Date: 20200703
  Receipt Date: 20200703
  Transmission Date: 20201103
  Serious: No
  Sender: FDA-Public Use
  Company Number: US-SA-2020SA171837

PATIENT

DRUGS (1)
  1. DUPIXENT [Suspect]
     Active Substance: DUPILUMAB
     Indication: ASTHMA
     Dosage: 600 MG, 1X
     Route: 065
     Dates: start: 2020, end: 2020

REACTIONS (2)
  - Product use issue [Unknown]
  - Arthralgia [Unknown]

NARRATIVE: CASE EVENT DATE: 2020
